FAERS Safety Report 18585501 (Version 10)
Quarter: 2025Q3

REPORT INFORMATION
  Report Type: Report from Study
  Country: US (occurrence: US)
  Receive Date: 20201207
  Receipt Date: 20250826
  Transmission Date: 20251021
  Serious: Yes (Other)
  Sender: TAKEDA
  Company Number: US-TAKEDA-2020TUS053112

PATIENT
  Age: 47 Year
  Sex: Male
  Weight: 91 kg

DRUGS (11)
  1. HUMAN IMMUNOGLOBULIN G\HYALURONIDASE RECOMBINANT HUMAN [Suspect]
     Active Substance: HUMAN IMMUNOGLOBULIN G\HYALURONIDASE (HUMAN RECOMBINANT)
     Indication: Immunodeficiency common variable
     Dosage: 30 GRAM, Q4WEEKS
  2. DIPHENHYDRAMINE [Concomitant]
     Active Substance: DIPHENHYDRAMINE
  3. IBUPROFEN [Concomitant]
     Active Substance: IBUPROFEN
  4. TAMIFLU [Concomitant]
     Active Substance: OSELTAMIVIR PHOSPHATE
  5. AUGMENTIN [Concomitant]
     Active Substance: AMOXICILLIN\CLAVULANATE POTASSIUM
  6. NASONEX [Concomitant]
     Active Substance: MOMETASONE FUROATE
  7. ALLEGRA-D [Concomitant]
     Active Substance: FEXOFENADINE HYDROCHLORIDE\PSEUDOEPHEDRINE HYDROCHLORIDE
  8. SODIUM CHLORIDE [Concomitant]
     Active Substance: SODIUM CHLORIDE
  9. LIDOCAINE [Concomitant]
     Active Substance: LIDOCAINE
  10. EPINEPHRINE [Concomitant]
     Active Substance: EPINEPHRINE
  11. DIPHENHYDRAMINE HYDROCHLORIDE [Concomitant]
     Active Substance: DIPHENHYDRAMINE HYDROCHLORIDE

REACTIONS (13)
  - Pneumonia [Unknown]
  - Influenza [Unknown]
  - Inability to afford medication [Unknown]
  - Drug hypersensitivity [Unknown]
  - Sinusitis [Unknown]
  - Product dose omission issue [Unknown]
  - Inappropriate schedule of product administration [Unknown]
  - Bronchitis [Unknown]
  - Rhinovirus infection [Unknown]
  - Sinus disorder [Not Recovered/Not Resolved]
  - Nasopharyngitis [Unknown]
  - COVID-19 [Unknown]
  - Malaise [Unknown]

NARRATIVE: CASE EVENT DATE: 20221201
